FAERS Safety Report 12729933 (Version 1)
Quarter: 2016Q3

REPORT INFORMATION
  Report Type: Spontaneous
  Country: US (occurrence: US)
  Receive Date: 20160909
  Receipt Date: 20160909
  Transmission Date: 20161109
  Serious: No
  Sender: FDA-Public Use
  Company Number: US-DRREDDYS-DRL/USA/16/0080451

PATIENT
  Age: 35 Year
  Sex: Male

DRUGS (1)
  1. FEXOFENADINE HCL 60 MG AND PSEUDOEPHEDRINE HCL ER 120 MG [Suspect]
     Active Substance: FEXOFENADINE HYDROCHLORIDE\PSEUDOEPHEDRINE HYDROCHLORIDE
     Indication: HYPERSENSITIVITY
     Dosage: 60/120 MG
     Route: 048
     Dates: start: 201605

REACTIONS (3)
  - Medication residue present [Unknown]
  - Drug ineffective [Unknown]
  - Product quality issue [Unknown]
